FAERS Safety Report 4858719-4 (Version None)
Quarter: 2005Q4

REPORT INFORMATION
  Report Type: 
  Country: None (occurrence: None)
  Receive Date: 20051219
  Receipt Date: 20051021
  Transmission Date: 20060501
  Serious: No
  Sender: FDA-Public Use
  Company Number: US-GLAXOSMITHKLINE-A0579108A

PATIENT
  Age: 72 Year
  Sex: Female

DRUGS (7)
  1. NICODERM CQ [Suspect]
  2. PREVACID [Concomitant]
  3. LISINOPRIL [Concomitant]
  4. PLAVIX [Concomitant]
  5. ATENOLOL [Concomitant]
  6. AMITRIPTYLINE HCL [Concomitant]
  7. NITROQUICK [Concomitant]

REACTIONS (1)
  - DEHYDRATION [None]
